FAERS Safety Report 15105060 (Version 1)
Quarter: 2018Q3

REPORT INFORMATION
  Report Type: Spontaneous
  Country: IT (occurrence: IT)
  Receive Date: 20180703
  Receipt Date: 20180703
  Transmission Date: 20181010
  Serious: Yes (Other)
  Sender: FDA-Public Use
  Company Number: IT-AMGEN-ITASP2018090633

PATIENT
  Age: 73 Year
  Sex: Female
  Weight: 68 kg

DRUGS (10)
  1. FULCRO [Concomitant]
     Active Substance: FENOFIBRATE
  2. LAROXYL [Concomitant]
     Active Substance: AMITRIPTYLINE HYDROCHLORIDE
  3. URSOBIL [Concomitant]
     Active Substance: URSODIOL
  4. DIBASE [Concomitant]
     Active Substance: CHOLECALCIFEROL
  5. ACIDO ZOLEDRONICO SANDOZ [Concomitant]
  6. ANASTROZOLE. [Concomitant]
     Active Substance: ANASTROZOLE
  7. SEREUPIN [Concomitant]
     Active Substance: PAROXETINE HYDROCHLORIDE
  8. MODURETIC 5?50 [Concomitant]
     Active Substance: AMILORIDE HYDROCHLORIDE\HYDROCHLOROTHIAZIDE
  9. XGEVA [Suspect]
     Active Substance: DENOSUMAB
     Indication: METASTASES TO BONE
     Dosage: 120 MG, CYCLICAL
     Route: 058
     Dates: start: 20170403
  10. TIROSINT [Concomitant]
     Active Substance: LEVOTHYROXINE SODIUM

REACTIONS (1)
  - Osteonecrosis of jaw [Recovering/Resolving]

NARRATIVE: CASE EVENT DATE: 20171115
